FAERS Safety Report 6553490-2 (Version None)
Quarter: 2010Q1

REPORT INFORMATION
  Report Type: 
  Country: None (occurrence: None)
  Receive Date: 20100122
  Receipt Date: 20100106
  Transmission Date: 20100710
  Serious: Yes (Death)
  Sender: FDA-Public Use
  Company Number: 2009AC000006

PATIENT
  Age: 58 Year
  Sex: Male

DRUGS (16)
  1. DIGOXIN [Suspect]
     Dosage: PO
     Route: 048
     Dates: start: 20080201
  2. DOCUSATE SODIUM [Concomitant]
  3. HYDROCODONE [Concomitant]
  4. FAMOTIDINE [Concomitant]
  5. CEPHALEXIN [Concomitant]
  6. METOPROLOL TARTRATE [Concomitant]
  7. ALPRAZOLAM [Concomitant]
  8. PRAVASTATIN [Concomitant]
  9. HYDRALAZINE [Concomitant]
  10. GLIMEPIRIDE [Concomitant]
  11. FOSRENOL [Concomitant]
  12. FLUOXETINE [Concomitant]
  13. ASPIRIN [Concomitant]
  14. FLORASTOR [Concomitant]
  15. DIPHENOXYLATE [Concomitant]
  16. CLOTRIMAZOLE [Concomitant]

REACTIONS (2)
  - ECONOMIC PROBLEM [None]
  - MULTIPLE INJURIES [None]
